FAERS Safety Report 20428115 (Version 1)
Quarter: 2022Q1

REPORT INFORMATION
  Report Type: Report from Study
  Country: IT (occurrence: IT)
  Receive Date: 20220204
  Receipt Date: 20220204
  Transmission Date: 20220423
  Serious: Yes (Hospitalization)
  Sender: FDA-Public Use
  Company Number: None

PATIENT
  Age: 51 Year
  Sex: Female

DRUGS (5)
  1. QUETIAPINE FUMARATE [Suspect]
     Active Substance: QUETIAPINE FUMARATE
     Dates: start: 20211225, end: 20211225
  2. GABAPENTIN [Suspect]
     Active Substance: GABAPENTIN
     Dates: start: 20211225, end: 20211225
  3. VALPROATE SODIUM [Suspect]
     Active Substance: VALPROATE SODIUM
     Dosage: DEPAKIN 500 MG COMPRESSE GASTRORESISTENTI
     Dates: start: 20211225, end: 20211225
  4. LITHIUM SULFATE [Suspect]
     Active Substance: LITHIUM SULFATE
     Dosage: RESILIENT 83 MG COMPRESSE A RILASCIO PROLUNGATO
     Dates: start: 20211225, end: 20211225
  5. PAROXETINE [Concomitant]
     Active Substance: PAROXETINE

REACTIONS (2)
  - Confusional state [Unknown]
  - Toxicity to various agents [Unknown]

NARRATIVE: CASE EVENT DATE: 20211225
